FAERS Safety Report 4439476-2 (Version None)
Quarter: 2004Q3

REPORT INFORMATION
  Report Type: 
  Country: None (occurrence: None)
  Receive Date: 20040831
  Receipt Date: 20040831
  Transmission Date: 20050211
  Serious: Yes (Death)
  Sender: FDA-Public Use
  Company Number: None

PATIENT
  Age: 43 Year
  Sex: Male

DRUGS (7)
  1. ACTIVASE [Suspect]
     Indication: CEREBROVASCULAR ACCIDENT
  2. ASPIRIN [Concomitant]
  3. COREG [Concomitant]
  4. DIOVAN [Concomitant]
  5. K-DUR 10 [Concomitant]
  6. LASIX [Concomitant]
  7. NORVASC [Concomitant]

REACTIONS (4)
  - AGITATION [None]
  - BLOOD PRESSURE INCREASED [None]
  - HAEMORRHAGE INTRACRANIAL [None]
  - INTRACRANIAL HAEMATOMA [None]
